FAERS Safety Report 18198799 (Version 1)
Quarter: 2020Q3

REPORT INFORMATION
  Report Type: Spontaneous
  Country: OM (occurrence: OM)
  Receive Date: 20200826
  Receipt Date: 20200826
  Transmission Date: 20201103
  Serious: Yes (Other)
  Sender: FDA-Public Use
  Company Number: OM-SA-2020SA225258

PATIENT

DRUGS (7)
  1. TRIMETHOPRIM. [Suspect]
     Active Substance: TRIMETHOPRIM
  2. TREOSULFAN [Suspect]
     Active Substance: TREOSULFAN
  3. THIOTEPA. [Suspect]
     Active Substance: THIOTEPA
  4. SULFAMETHOXAZOLE [Suspect]
     Active Substance: SULFAMETHOXAZOLE
  5. ANTI?THYMOCYTE GLOBULIN (RABBIT) NOS [Suspect]
     Active Substance: LAPINE T-LYMPHOCYTE IMMUNE GLOBULIN
  6. FLUDARABINE [Suspect]
     Active Substance: FLUDARABINE PHOSPHATE
  7. RITUXIMAB. [Suspect]
     Active Substance: RITUXIMAB

REACTIONS (7)
  - Gastrointestinal haemorrhage [Unknown]
  - Systemic candida [Unknown]
  - Pulmonary oedema [Unknown]
  - Pneumocystis jirovecii pneumonia [Unknown]
  - Cardiac failure [Unknown]
  - Acute lung injury [Unknown]
  - Cytomegalovirus enteritis [Unknown]
